FAERS Safety Report 5874925-4 (Version None)
Quarter: 2008Q3

REPORT INFORMATION
  Report Type: 
  Country: None (occurrence: None)
  Receive Date: 20080909
  Receipt Date: 20080829
  Transmission Date: 20090109
  Serious: Yes (Other)
  Sender: FDA-Public Use
  Company Number: US-JNJFOC-20080900510

PATIENT
  Sex: Male

DRUGS (1)
  1. DURAGESIC-100 [Suspect]
     Indication: DRUG USE FOR UNKNOWN INDICATION
     Dosage: 3 X 100 UG/HR
     Route: 062

REACTIONS (5)
  - AFFECTIVE DISORDER [None]
  - BLOOD TESTOSTERONE ABNORMAL [None]
  - HYPOTHALAMO-PITUITARY DISORDER [None]
  - THROAT CANCER [None]
  - THYROID DISORDER [None]
